FAERS Safety Report 14386261 (Version 2)
Quarter: 2019Q2

REPORT INFORMATION
  Report Type: Spontaneous
  Country: US (occurrence: US)
  Receive Date: 20180115
  Receipt Date: 20190527
  Transmission Date: 20190711
  Serious: Yes (Other)
  Sender: FDA-Public Use
  Company Number: US-SA-2017SA087563

PATIENT
  Age: 54 Year
  Sex: Female
  Weight: 102 kg

DRUGS (12)
  1. ZORTRESS [Concomitant]
     Active Substance: EVEROLIMUS
  2. DOCETAXEL. [Suspect]
     Active Substance: DOCETAXEL
     Indication: BREAST CANCER FEMALE
     Dosage: 163 MG,Q3W
     Route: 042
     Dates: start: 20130320, end: 20130320
  3. DOCETAXEL. [Suspect]
     Active Substance: DOCETAXEL
     Dosage: 163 MG,Q3W
     Route: 042
     Dates: start: 20130813, end: 20130813
  4. ADRIAMYCIN [Concomitant]
     Active Substance: DOXORUBICIN HYDROCHLORIDE
  5. NORVASC [Concomitant]
     Active Substance: AMLODIPINE BESYLATE
  6. DOCETAXEL. [Suspect]
     Active Substance: DOCETAXEL
     Dosage: UNK UNK,QCY
     Route: 042
     Dates: start: 20141021, end: 20141021
  7. DOCETAXEL. [Suspect]
     Active Substance: DOCETAXEL
     Dosage: UNK UNK,QCY
     Route: 042
     Dates: start: 20150217, end: 20150217
  8. AFINITOR [Concomitant]
     Active Substance: EVEROLIMUS
  9. CYTOXAN [Concomitant]
     Active Substance: CYCLOPHOSPHAMIDE
  10. NEOSAR [Concomitant]
     Active Substance: CYCLOPHOSPHAMIDE
  11. RIBAVIRIN. [Concomitant]
     Active Substance: RIBAVIRIN
  12. SOVALDI [Concomitant]
     Active Substance: SOFOSBUVIR

REACTIONS (6)
  - Anxiety [Unknown]
  - Psychological trauma [Unknown]
  - Impaired quality of life [Unknown]
  - Emotional distress [Unknown]
  - Pain [Unknown]
  - Alopecia [Not Recovered/Not Resolved]

NARRATIVE: CASE EVENT DATE: 20140213
